FAERS Safety Report 8795337 (Version 2)
Quarter: 2012Q4

REPORT INFORMATION
  Report Type: 
  Country: US (occurrence: US)
  Receive Date: 20120918
  Receipt Date: 20121018
  Transmission Date: 20130627
  Serious: Yes (Death, Other)
  Sender: FDA-Public Use
  Company Number: US-ROCHE-1128573

PATIENT
  Sex: Female

DRUGS (12)
  1. AVASTIN [Suspect]
     Indication: CARCINOID SYNDROME
     Route: 042
     Dates: start: 20101201
  2. PROZAC [Concomitant]
  3. ZOFRAN [Concomitant]
  4. MORPHINE SULFATE [Concomitant]
     Route: 065
  5. OCTREOTIDE [Concomitant]
     Route: 065
  6. AREDIA [Concomitant]
     Route: 042
  7. LOMOTIL [Concomitant]
     Route: 065
  8. IMODIUM [Concomitant]
     Route: 065
  9. LORAZEPAM [Concomitant]
     Route: 065
  10. TPN [Concomitant]
     Dosage: times 1 week and had 2 times in past
     Route: 065
  11. AMBIEN [Concomitant]
     Route: 065
  12. CREON [Concomitant]
     Route: 065

REACTIONS (5)
  - Death [Fatal]
  - Weight decreased [Unknown]
  - Failure to thrive [Unknown]
  - Decreased appetite [Unknown]
  - Abdominal pain [Unknown]
